FAERS Safety Report 7719458-5 (Version None)
Quarter: 2011Q3

REPORT INFORMATION
  Report Type: 
  Country: None (occurrence: None)
  Receive Date: 20110830
  Receipt Date: 20110826
  Transmission Date: 20111222
  Serious: Yes (Hospitalization)
  Sender: FDA-Public Use
  Company Number: PHHO2011RO12952

PATIENT
  Sex: Female
  Weight: 62 kg

DRUGS (4)
  1. FTY [Suspect]
     Indication: MULTIPLE SCLEROSIS
     Dosage: 0.5 MG OR 1.25 MG
     Route: 048
     Dates: start: 20090117, end: 20090617
  2. FTY [Suspect]
     Dosage: 0.5 MG OR 1.25 MG
     Route: 048
     Dates: start: 20090618, end: 20100613
  3. FTY [Suspect]
     Dosage: 0.5 MG
     Route: 048
     Dates: start: 20100514, end: 20110730
  4. SOLU-MEDROL [Concomitant]
     Indication: MULTIPLE SCLEROSIS
     Dosage: UNK
     Dates: start: 20090206, end: 20090208

REACTIONS (2)
  - MATERNAL EXPOSURE DURING PREGNANCY [None]
  - INTRA-UTERINE DEATH [None]
